FAERS Safety Report 8876357 (Version 3)
Quarter: 2014Q2

REPORT INFORMATION
  Report Type: Report from Study
  Country: CA (occurrence: CA)
  Receive Date: 20121031
  Receipt Date: 20140513
  Transmission Date: 20141212
  Serious: Yes (Hospitalization, Other)
  Sender: FDA-Public Use
  Company Number: PHMT2006CA02225

PATIENT
  Sex: Male

DRUGS (6)
  1. SANDOSTATIN LAR [Suspect]
     Indication: CARCINOID TUMOUR
     Dosage: 30 MG, QMO
     Route: 030
     Dates: start: 20060811, end: 20090616
  2. SANDOSTATIN LAR [Suspect]
     Dosage: 30 MG EVERY 4 WEEKS
     Route: 030
     Dates: end: 201101
  3. HYDROCHLOROTHIAZIDE [Concomitant]
     Dosage: UNK UKN, UNK
  4. LIPITOR [Concomitant]
     Dosage: UNK UKN, UNK
  5. LOSEC [Concomitant]
     Dosage: UNK UKN, UNK
  6. PAXIL [Concomitant]
     Dosage: UNK UKN, UNK

REACTIONS (11)
  - Blood potassium decreased [Unknown]
  - Blood pressure decreased [Unknown]
  - Blood pressure increased [Recovering/Resolving]
  - Hepatic neoplasm [Recovering/Resolving]
  - Hepatic lesion [Unknown]
  - Flushing [Unknown]
  - Injection site mass [Unknown]
  - Diarrhoea [Not Recovered/Not Resolved]
  - Blood glucose increased [Unknown]
  - Fatigue [Not Recovered/Not Resolved]
  - Nausea [Not Recovered/Not Resolved]
